FAERS Safety Report 14650490 (Version 2)
Quarter: 2018Q1

REPORT INFORMATION
  Report Type: Spontaneous
  Country: NL (occurrence: NL)
  Receive Date: 20180316
  Receipt Date: 20180327
  Transmission Date: 20180509
  Serious: Yes (Hospitalization, Other)
  Sender: FDA-Public Use
  Company Number: NL-BRISTOL-MYERS SQUIBB COMPANY-BMS-2018-022222

PATIENT
  Age: 49 Year
  Sex: Female
  Weight: 73 kg

DRUGS (1)
  1. KENACORT-A [Suspect]
     Active Substance: TRIAMCINOLONE
     Indication: MUSCULOSKELETAL PAIN
     Route: 065

REACTIONS (6)
  - Product use in unapproved indication [Unknown]
  - Hot flush [Recovered/Resolved]
  - Mood swings [Recovered/Resolved]
  - Menstrual disorder [Unknown]
  - Cerebrovascular accident [Recovered/Resolved with Sequelae]
  - Epistaxis [Recovered/Resolved]

NARRATIVE: CASE EVENT DATE: 20171215
